FAERS Safety Report 17064609 (Version 4)
Quarter: 2021Q1

REPORT INFORMATION
  Report Type: Spontaneous
  Country: US (occurrence: US)
  Receive Date: 20191122
  Receipt Date: 20210208
  Transmission Date: 20210419
  Serious: No
  Sender: FDA-Public Use
  Company Number: US-PFIZER INC-2019188238

PATIENT
  Age: 68 Year
  Sex: Male

DRUGS (3)
  1. LYRICA [Suspect]
     Active Substance: PREGABALIN
     Indication: ANAEMIA
     Dosage: 150 MG, 4X/DAY
     Route: 048
  2. LYRICA [Suspect]
     Active Substance: PREGABALIN
     Indication: ARTERIOSCLEROSIS CORONARY ARTERY
     Dosage: 50 MG
  3. LYRICA [Suspect]
     Active Substance: PREGABALIN
     Dosage: 150 MG, 4X/DAY(1 CAPSULE PER ORAL FOUR TIMES A DAY FOR 90 DAYS)
     Route: 048

REACTIONS (2)
  - Peripheral swelling [Unknown]
  - Off label use [Unknown]
